FAERS Safety Report 4956320-5 (Version None)
Quarter: 2006Q1

REPORT INFORMATION
  Report Type: 
  Country: None (occurrence: None)
  Receive Date: 20060323
  Receipt Date: 20060217
  Transmission Date: 20060701
  Serious: Yes (Death, Hospitalization)
  Sender: FDA-Public Use
  Company Number: TR200603002184

PATIENT
  Age: 61 Year
  Sex: Male
  Weight: 70 kg

DRUGS (2)
  1. GEMZAR [Suspect]
     Indication: NON-SMALL CELL LUNG CANCER
     Dosage: 1800 MG, WEEKLY (1/W), INTRAVENOUS
     Route: 042
     Dates: start: 20040107
  2. CISPLATIN [Concomitant]

REACTIONS (2)
  - ASTHMA [None]
  - BONE MARROW TOXICITY [None]
